FAERS Safety Report 17978360 (Version 2)
Quarter: 2020Q3

REPORT INFORMATION
  Report Type: Spontaneous
  Country: US (occurrence: US)
  Receive Date: 20200703
  Receipt Date: 20200904
  Transmission Date: 20201103
  Serious: No
  Sender: FDA-Public Use
  Company Number: US-GLAXOSMITHKLINE-US2020AMR117523

PATIENT
  Sex: Female

DRUGS (1)
  1. ZEJULA [Suspect]
     Active Substance: NIRAPARIB
     Indication: OVARIAN CANCER
     Dosage: 200 MG, QD(PM)
     Route: 048
     Dates: start: 20200617

REACTIONS (3)
  - Carbohydrate antigen 125 increased [Unknown]
  - Drug ineffective [Unknown]
  - Laboratory test abnormal [Unknown]
